FAERS Safety Report 20335473 (Version 1)
Quarter: 2022Q1

REPORT INFORMATION
  Report Type: Spontaneous
  Country: KP (occurrence: KP)
  Receive Date: 20220114
  Receipt Date: 20220114
  Transmission Date: 20220424
  Serious: Yes (Other)
  Sender: FDA-Public Use
  Company Number: DEX 2022-0004(0)

PATIENT

DRUGS (4)
  1. DEXMEDETOMIDINE HYDROCHLORIDE [Suspect]
     Active Substance: DEXMEDETOMIDINE HYDROCHLORIDE
     Indication: Sedative therapy
     Dosage: 480 MICROGRAM/H FOR 10 MIN FOR LOADING
     Route: 065
  2. DEXMEDETOMIDINE HYDROCHLORIDE [Suspect]
     Active Substance: DEXMEDETOMIDINE HYDROCHLORIDE
     Dosage: 1152 MCG (48 MCG, 1 IN 1 HR)
     Route: 065
  3. LIDOCAINE [Concomitant]
     Active Substance: LIDOCAINE
     Indication: Local anaesthesia
     Dosage: 1 PERCENT (LIDOCAINE 10 ML (100MG)
     Route: 065
  4. ROPIVACAINE [Concomitant]
     Active Substance: ROPIVACAINE
     Indication: Local anaesthesia
     Dosage: 0.75% ROPIVACAINE 20 ML (150 MG)
     Route: 065

REACTIONS (9)
  - Electrocardiogram QT prolonged [Recovered/Resolved]
  - Blood pressure decreased [Recovered/Resolved]
  - Ventricular fibrillation [Recovered/Resolved]
  - Ventricular tachycardia [Recovered/Resolved]
  - Somnolence [Recovered/Resolved]
  - Cardiac arrest [Recovered/Resolved]
  - Oxygen saturation decreased [Recovered/Resolved]
  - Local anaesthetic systemic toxicity [Recovered/Resolved]
  - Pulmonary oedema [Recovered/Resolved]
